FAERS Safety Report 6160383-1 (Version None)
Quarter: 2009Q2

REPORT INFORMATION
  Report Type: 
  Country: None (occurrence: None)
  Receive Date: 20090420
  Receipt Date: 20090413
  Transmission Date: 20091009
  Serious: Yes (Other)
  Sender: FDA-Public Use
  Company Number: US-ELI_LILLY_AND_COMPANY-US200904002531

PATIENT
  Sex: Female

DRUGS (3)
  1. HUMALOG [Suspect]
     Dosage: UNK, AS NEEDED
  2. HUMALOG [Suspect]
     Dosage: UNK, AS NEEDED
     Route: 058
  3. LANTUS [Concomitant]

REACTIONS (5)
  - APPLICATION SITE REACTION [None]
  - BLOOD GLUCOSE FLUCTUATION [None]
  - DIABETIC NEUROPATHY [None]
  - INFECTION [None]
  - SEPSIS [None]
